FAERS Safety Report 16971556 (Version 1)
Quarter: 2019Q4

REPORT INFORMATION
  Report Type: Report from Study
  Country: JP (occurrence: JP)
  Receive Date: 20191029
  Receipt Date: 20191029
  Transmission Date: 20200122
  Serious: Yes (Other)
  Sender: FDA-Public Use
  Company Number: JP-JNJFOC-20191037035

PATIENT

DRUGS (3)
  1. IMBRUVICA [Suspect]
     Active Substance: IBRUTINIB
     Indication: CHRONIC LYMPHOCYTIC LEUKAEMIA
     Route: 048
  2. IMBRUVICA [Suspect]
     Active Substance: IBRUTINIB
     Indication: LYMPHOCYTIC LYMPHOMA
  3. IMBRUVICA [Suspect]
     Active Substance: IBRUTINIB
     Indication: MANTLE CELL LYMPHOMA

REACTIONS (21)
  - Platelet count decreased [Unknown]
  - Constipation [Unknown]
  - Pneumonia [Unknown]
  - Haemorrhage subcutaneous [Unknown]
  - Impetigo [Unknown]
  - Febrile neutropenia [Unknown]
  - Lymphocytosis [Unknown]
  - Headache [Unknown]
  - Arteriospasm coronary [Unknown]
  - Pulmonary tuberculosis [Unknown]
  - Pyrexia [Unknown]
  - Stomatitis [Unknown]
  - Neutrophil count decreased [Unknown]
  - Fatigue [Unknown]
  - Nausea [Unknown]
  - Anaemia [Unknown]
  - Upper respiratory tract inflammation [Unknown]
  - Diverticulum intestinal haemorrhagic [Unknown]
  - Epistaxis [Unknown]
  - Rash [Unknown]
  - Granuloma [Unknown]
